FAERS Safety Report 7097432-2 (Version None)
Quarter: 2010Q4

REPORT INFORMATION
  Report Type: 
  Country: None (occurrence: None)
  Receive Date: 20101111
  Receipt Date: 20101102
  Transmission Date: 20110411
  Serious: Yes (Other)
  Sender: FDA-Public Use
  Company Number: US-ABBOTT-10P-163-0683540-00

PATIENT
  Age: 20 Year
  Sex: Female

DRUGS (4)
  1. RITONAVIR [Suspect]
     Indication: HIV INFECTION
     Route: 048
  2. DARUNAVIR [Concomitant]
     Indication: HIV INFECTION
     Dosage: TAKING AT CONCEPTION
     Route: 048
  3. ETRAVIRINE [Concomitant]
     Indication: HIV INFECTION
     Dosage: TAKING AT CONCEPTION
  4. RALTEGRAVIR [Concomitant]
     Indication: HIV INFECTION
     Dosage: TAKING AT CONCEPTION
     Route: 048

REACTIONS (1)
  - ABORTION SPONTANEOUS [None]
